FAERS Safety Report 12174241 (Version 1)
Quarter: 2016Q1

REPORT INFORMATION
  Report Type: Spontaneous
  Country: IT (occurrence: IT)
  Receive Date: 20160313
  Receipt Date: 20160313
  Transmission Date: 20160526
  Serious: Yes (Other)
  Sender: FDA-Public Use
  Company Number: IT-CIPLA LTD.-2016IT02252

PATIENT

DRUGS (5)
  1. ATAZANAVIR [Suspect]
     Active Substance: ATAZANAVIR
     Dosage: 300 MG, UNK
     Route: 065
  2. RITONAVIR. [Suspect]
     Active Substance: RITONAVIR
     Dosage: 100 MG, UNK
     Route: 065
  3. RITONAVIR. [Suspect]
     Active Substance: RITONAVIR
     Indication: HIV INFECTION
     Dosage: UNK
     Route: 065
  4. LAMIVUDINE. [Suspect]
     Active Substance: LAMIVUDINE
     Indication: HIV INFECTION
     Dosage: 300 MG, QD
     Route: 065
  5. ATAZANAVIR [Suspect]
     Active Substance: ATAZANAVIR
     Indication: HIV INFECTION
     Dosage: UNK
     Route: 065

REACTIONS (1)
  - Low density lipoprotein increased [Unknown]
